FAERS Safety Report 5919394-0 (Version None)
Quarter: 2008Q4

REPORT INFORMATION
  Report Type: 
  Country: None (occurrence: None)
  Receive Date: 20081015
  Receipt Date: 20081010
  Transmission Date: 20090506
  Serious: Yes (Other)
  Sender: FDA-Public Use
  Company Number: B0541155A

PATIENT
  Sex: Female

DRUGS (5)
  1. SEREVENT [Suspect]
     Indication: ASTHMA
     Dosage: 50MCG TWICE PER DAY
     Route: 055
     Dates: start: 20060610, end: 20060612
  2. DIART [Concomitant]
     Route: 048
  3. NORVASC [Concomitant]
     Route: 048
  4. KIPRES [Concomitant]
     Route: 048
  5. PERSANTINE [Concomitant]
     Route: 065

REACTIONS (1)
  - CARDIAC FAILURE [None]
